FAERS Safety Report 5518452-2 (Version None)
Quarter: 2007Q4

REPORT INFORMATION
  Report Type: 
  Country: None (occurrence: None)
  Receive Date: 20071115
  Receipt Date: 20071105
  Transmission Date: 20080405
  Serious: Yes (Hospitalization, Other)
  Sender: FDA-Public Use
  Company Number: US-PFIZER INC-2006150147

PATIENT
  Sex: Female
  Weight: 136.1 kg

DRUGS (2)
  1. CELEBREX [Suspect]
     Route: 048
     Dates: start: 20021201, end: 20030301
  2. VIOXX [Suspect]
     Indication: ARTHRITIS
     Route: 048
     Dates: start: 20010401, end: 20030301

REACTIONS (1)
  - DEEP VEIN THROMBOSIS [None]
